FAERS Safety Report 15903758 (Version 1)
Quarter: 2019Q1

REPORT INFORMATION
  Report Type: Spontaneous
  Country: US (occurrence: US)
  Receive Date: 20190203
  Receipt Date: 20190203
  Transmission Date: 20190417
  Serious: No
  Sender: FDA-Public Use
  Company Number: US-AMGEN-USASP2019015371

PATIENT
  Age: 67 Year
  Sex: Female

DRUGS (1)
  1. NEULASTA [Suspect]
     Active Substance: PEGFILGRASTIM
     Indication: PRODUCT USED FOR UNKNOWN INDICATION
     Dosage: UNK
     Route: 065

REACTIONS (1)
  - Laboratory test abnormal [Unknown]

NARRATIVE: CASE EVENT DATE: 20190129
